FAERS Safety Report 7417774-8 (Version None)
Quarter: 2011Q2

REPORT INFORMATION
  Report Type: 
  Country: None (occurrence: None)
  Receive Date: 20110415
  Receipt Date: 20110404
  Transmission Date: 20111010
  Serious: Yes (Other)
  Sender: FDA-Public Use
  Company Number: US-PFIZER INC-2011074104

PATIENT
  Age: 55 Year
  Sex: Female

DRUGS (2)
  1. PRISTIQ [Suspect]
     Indication: DEPRESSION
     Dosage: 50 MG, 1X/DAY
  2. PRISTIQ [Suspect]
     Dosage: 100 MG, 1X/DAY

REACTIONS (3)
  - MOOD SWINGS [None]
  - DEHYDRATION [None]
  - WEIGHT DECREASED [None]
